FAERS Safety Report 8604611-9 (Version None)
Quarter: 2012Q3

REPORT INFORMATION
  Report Type: 
  Country: None (occurrence: None)
  Receive Date: 20120807
  Receipt Date: 20120607
  Transmission Date: 20120928
  Serious: Yes (Other)
  Sender: FDA-Public Use
  Company Number: 20120357

PATIENT
  Age: 64 Year
  Sex: Female
  Weight: 54.43 kg

DRUGS (1)
  1. VENOFER [Suspect]
     Indication: IRON DEFICIENCY ANAEMIA
     Dosage: 500 MG/25 ML OVER 4, HOURS INTRAVENOUS DRIP
     Route: 041
     Dates: start: 20120605, end: 20120605

REACTIONS (1)
  - ANAPHYLACTOID REACTION [None]
